FAERS Safety Report 4479733-7 (Version None)
Quarter: 2004Q3

REPORT INFORMATION
  Report Type: 
  Country: None (occurrence: None)
  Receive Date: 20040923
  Receipt Date: 20040603
  Transmission Date: 20050211
  Serious: No
  Sender: FDA-Public Use
  Company Number: USA040360871

PATIENT
  Age: 76 Year
  Sex: Female

DRUGS (7)
  1. FORTEO [Suspect]
     Indication: OSTEOPOROSIS
     Dates: start: 20040217, end: 20040602
  2. DARVOCET-N 100 [Concomitant]
  3. MAVIK [Concomitant]
  4. CARDIZEM [Concomitant]
  5. AMIODARONE [Concomitant]
  6. FOSAMAX [Concomitant]
  7. MIACALCIN [Concomitant]

REACTIONS (2)
  - FATIGUE [None]
  - PAIN IN EXTREMITY [None]
